FAERS Safety Report 9766418 (Version 3)
Quarter: 2013Q4

REPORT INFORMATION
  Report Type: Spontaneous
  Country: IT (occurrence: IT)
  Receive Date: 20131217
  Receipt Date: 20131230
  Transmission Date: 20140711
  Serious: Yes (Life-Threatening)
  Sender: FDA-Public Use
  Company Number: IT-SA-2013SA129162

PATIENT
  Age: 93 Year
  Sex: Male

DRUGS (10)
  1. STILNOX [Suspect]
     Indication: COGNITIVE DISORDER
     Route: 048
     Dates: end: 20130920
  2. STILNOX [Suspect]
     Indication: INSOMNIA
     Route: 048
     Dates: end: 20130920
  3. STILNOX [Suspect]
     Indication: ANXIETY
     Route: 048
     Dates: end: 20130920
  4. LORAZEPAM [Suspect]
     Indication: COGNITIVE DISORDER
     Route: 048
     Dates: end: 20130920
  5. LORAZEPAM [Suspect]
     Indication: INSOMNIA
     Route: 048
     Dates: end: 20130920
  6. LORAZEPAM [Suspect]
     Indication: ANXIETY
     Route: 048
     Dates: end: 20130920
  7. PANTORC [Concomitant]
     Indication: PROPHYLAXIS AGAINST GASTROINTESTINAL ULCER
     Route: 048
     Dates: start: 20130920
  8. SEROQUEL [Concomitant]
     Dosage: STRENGTH: 50 MG
     Route: 048
  9. HALDOL [Concomitant]
     Indication: AGITATION
     Route: 048
  10. CARDIOASPIRIN [Concomitant]
     Indication: THROMBOSIS PROPHYLAXIS
     Dosage: STRENGTH: 100 MG ENTERIC COATED TABLETS
     Route: 048

REACTIONS (3)
  - Subdural haematoma [Recovering/Resolving]
  - Ear haemorrhage [Recovering/Resolving]
  - Fall [Recovering/Resolving]
